FAERS Safety Report 16010773 (Version 1)
Quarter: 2019Q1

REPORT INFORMATION
  Report Type: Spontaneous
  Country: US (occurrence: US)
  Receive Date: 20190227
  Receipt Date: 20190227
  Transmission Date: 20190418
  Serious: Yes (Hospitalization, Other)
  Sender: FDA-Public Use
  Company Number: US-GLAXOSMITHKLINE-US2019GSK033974

PATIENT
  Age: 59 Year
  Sex: Female
  Weight: 102.4 kg

DRUGS (3)
  1. GENOTROPIN [Suspect]
     Active Substance: SOMATROPIN
     Indication: BLOOD GROWTH HORMONE
     Dosage: 5 MG, UNK
  2. BUPROPION. [Suspect]
     Active Substance: BUPROPION
     Indication: DEPRESSION
     Dosage: UNK
     Dates: end: 201802
  3. GENOTROPIN [Suspect]
     Active Substance: SOMATROPIN
     Indication: BLOOD GROWTH HORMONE
     Dosage: 0.4 MG, QD
     Route: 042
     Dates: start: 201702

REACTIONS (12)
  - Pain [Unknown]
  - Hypopituitarism [Unknown]
  - Brain neoplasm [Unknown]
  - Anxiety [Not Recovered/Not Resolved]
  - Thyroid disorder [Unknown]
  - Hypersomnia [Unknown]
  - Muscle strain [Unknown]
  - Condition aggravated [Not Recovered/Not Resolved]
  - Gastroenteritis [Unknown]
  - Asthenia [Not Recovered/Not Resolved]
  - Depression [Not Recovered/Not Resolved]
  - Nervousness [Unknown]

NARRATIVE: CASE EVENT DATE: 201802
